FAERS Safety Report 9415320 (Version 1)
Quarter: 2013Q3

REPORT INFORMATION
  Report Type: Spontaneous
  Country: US (occurrence: US)
  Receive Date: 20130723
  Receipt Date: 20130723
  Transmission Date: 20140515
  Serious: Yes (Hospitalization)
  Sender: FDA-Public Use
  Company Number: US-MYLANLABS-2012S1021267

PATIENT
  Age: 27 Year
  Sex: Female

DRUGS (3)
  1. ONDANSETRON [Suspect]
     Indication: NAUSEA
     Route: 048
     Dates: start: 20121001
  2. ONDANSETRON [Suspect]
     Indication: VOMITING
     Route: 048
     Dates: start: 20121001
  3. ONDANSETRON [Suspect]
     Route: 048
     Dates: start: 20121001

REACTIONS (5)
  - Drug ineffective [Not Recovered/Not Resolved]
  - Nausea [Not Recovered/Not Resolved]
  - Vomiting [Not Recovered/Not Resolved]
  - Diarrhoea [Not Recovered/Not Resolved]
  - Exposure during pregnancy [Not Recovered/Not Resolved]
